FAERS Safety Report 13853158 (Version 1)
Quarter: 2017Q3

REPORT INFORMATION
  Report Type: Spontaneous
  Country: US (occurrence: US)
  Receive Date: 20170809
  Receipt Date: 20170809
  Transmission Date: 20171127
  Serious: Yes (Death)
  Sender: FDA-Public Use
  Company Number: None

PATIENT
  Age: 2 Year
  Sex: Male

DRUGS (8)
  1. GLEEVEC [Concomitant]
     Active Substance: IMATINIB MESYLATE
  2. LOSARTAN POTASSIUM. [Concomitant]
     Active Substance: LOSARTAN POTASSIUM
  3. SILDENAFIL. [Concomitant]
     Active Substance: SILDENAFIL
  4. FONDAPARINUX [Concomitant]
     Active Substance: FONDAPARINUX
  5. OMEMPRAZOLE [Concomitant]
  6. SPIRONOLACTONE. [Concomitant]
     Active Substance: SPIRONOLACTONE
  7. REVATIO [Suspect]
     Active Substance: SILDENAFIL CITRATE
     Indication: MALFORMATION VENOUS
     Dosage: OTHER ROUTE:GTUBE?
  8. ZOFRAN [Concomitant]
     Active Substance: ONDANSETRON HYDROCHLORIDE

REACTIONS (1)
  - Death [None]

NARRATIVE: CASE EVENT DATE: 20170715
